FAERS Safety Report 5864190-6 (Version None)
Quarter: 2008Q3

REPORT INFORMATION
  Report Type: 
  Country: None (occurrence: None)
  Receive Date: 20080829
  Receipt Date: 20080820
  Transmission Date: 20090109
  Serious: Yes (Other)
  Sender: FDA-Public Use
  Company Number: BR-JNJFOC-20080804855

PATIENT
  Sex: Female

DRUGS (2)
  1. MICONAZOLE NITRATE [Suspect]
     Route: 048
  2. MICONAZOLE NITRATE [Suspect]
     Indication: ORAL CANDIDIASIS
     Route: 048

REACTIONS (2)
  - ASPHYXIA [None]
  - MEDICATION ERROR [None]
